FAERS Safety Report 15975990 (Version 4)
Quarter: 2019Q3

REPORT INFORMATION
  Report Type: Report from Study
  Country: None (occurrence: AU)
  Receive Date: 20190218
  Receipt Date: 20190919
  Transmission Date: 20191004
  Serious: Yes (Other)
  Sender: FDA-Public Use
  Company Number: AU-ABBVIE-19P-008-2664773-00

PATIENT
  Age: 59 Year
  Sex: Male
  Weight: 69 kg

DRUGS (2)
  1. DUODOPA [Suspect]
     Active Substance: CARBIDOPA\LEVODOPA
     Route: 050
     Dates: start: 20161127
  2. DUODOPA [Suspect]
     Active Substance: CARBIDOPA\LEVODOPA
     Indication: PARKINSON^S DISEASE
     Dosage: TITRATION: DOSING AT END OF TITRATION: MD: 0, CD: 1.8 ML/H, ED: 1, 24 HR, ND: 1.9
     Route: 050
     Dates: start: 20161112, end: 20161127

REACTIONS (1)
  - Stoma site hypergranulation [Recovered/Resolved]

NARRATIVE: CASE EVENT DATE: 20180731
